FAERS Safety Report 8348179-3 (Version None)
Quarter: 2012Q2

REPORT INFORMATION
  Report Type: 
  Country: None (occurrence: None)
  Receive Date: 20120509
  Receipt Date: 20120430
  Transmission Date: 20120825
  Serious: Yes (Hospitalization)
  Sender: FDA-Public Use
  Company Number: BR-ASTRAZENECA-2012SE28342

PATIENT
  Age: 83 Year
  Sex: Female
  Weight: 66 kg

DRUGS (5)
  1. BRILINTA [Suspect]
     Indication: ANTICOAGULANT THERAPY
     Route: 048
     Dates: start: 20120401, end: 20120429
  2. CLOPIDOGREL [Suspect]
     Indication: ANTICOAGULANT THERAPY
     Dosage: ONCE DAILY
     Route: 048
     Dates: start: 20070101, end: 20120401
  3. CRESTOR [Suspect]
     Indication: BLOOD CHOLESTEROL ABNORMAL
     Route: 048
     Dates: start: 20070101
  4. CALCIUM [Suspect]
     Indication: OSTEOPOROSIS
     Route: 048
     Dates: start: 20100101, end: 20120301
  5. CRESTOR [Suspect]
     Indication: BLOOD TRIGLYCERIDES INCREASED
     Route: 048
     Dates: start: 20070101

REACTIONS (7)
  - FATIGUE [None]
  - WEIGHT DECREASED [None]
  - HYPERSENSITIVITY [None]
  - OSTEOPOROSIS [None]
  - CORONARY ARTERY OCCLUSION [None]
  - DYSPNOEA [None]
  - INSOMNIA [None]
